FAERS Safety Report 6692590-3 (Version None)
Quarter: 2010Q2

REPORT INFORMATION
  Report Type: 
  Country: None (occurrence: None)
  Receive Date: 20100422
  Receipt Date: 20100413
  Transmission Date: 20101027
  Serious: Yes (Other)
  Sender: FDA-Public Use
  Company Number: US-PFIZER INC-2010020659

PATIENT
  Sex: Male

DRUGS (1)
  1. SUTENT [Suspect]
     Indication: METASTATIC RENAL CELL CARCINOMA
     Dosage: 12.5 MG, 3X/DAY
     Route: 048
     Dates: start: 20100208

REACTIONS (4)
  - CONTUSION [None]
  - HYPERSENSITIVITY [None]
  - MUSCLE SPASMS [None]
  - RECTAL HAEMORRHAGE [None]
